FAERS Safety Report 20907585 (Version 3)
Quarter: 2022Q3

REPORT INFORMATION
  Report Type: Report from Study
  Country: US (occurrence: None)
  Receive Date: 20220602
  Receipt Date: 20220804
  Transmission Date: 20221027
  Serious: Yes (Other)
  Sender: FDA-Public Use
  Company Number: US-Merck Healthcare KGaA-9325675

PATIENT
  Sex: Female

DRUGS (3)
  1. MAVENCLAD [Suspect]
     Active Substance: CLADRIBINE
     Indication: Multiple sclerosis
     Dosage: YEAR ONE MONTH ONE THERAPY
     Route: 048
     Dates: start: 20210614
  2. MAVENCLAD [Suspect]
     Active Substance: CLADRIBINE
     Dosage: YEAR ONE MONTH TWO THERAPY
     Route: 048
     Dates: start: 20210714
  3. MAVENCLAD [Suspect]
     Active Substance: CLADRIBINE
     Dosage: YEAR TWO MONTH ONE THERAPY: STARTED AT A DOSE OF 10 MG
     Route: 048
     Dates: start: 20220725

REACTIONS (11)
  - Multiple sclerosis [Recovering/Resolving]
  - Posture abnormal [Recovering/Resolving]
  - Hemihypoaesthesia [Recovered/Resolved]
  - Feeling cold [Recovered/Resolved]
  - Neck pain [Unknown]
  - Procedural pain [Unknown]
  - Fall [Unknown]
  - Hand fracture [Unknown]
  - Ligament sprain [Unknown]
  - Muscular weakness [Not Recovered/Not Resolved]
  - Muscle spasticity [Recovering/Resolving]
